FAERS Safety Report 19722678 (Version 1)
Quarter: 2021Q3

REPORT INFORMATION
  Report Type: Spontaneous
  Country: US (occurrence: US)
  Receive Date: 20210819
  Receipt Date: 20210819
  Transmission Date: 20211014
  Serious: Yes (Other)
  Sender: FDA-Public Use
  Company Number: US-MYLANLABS-2021M1053703

PATIENT
  Age: 37 Year
  Sex: Male

DRUGS (7)
  1. TALTZ [Concomitant]
     Active Substance: IXEKIZUMAB
     Dosage: 80 MG MAINTENANCE DOSES EVERY 2 WEEKS
     Route: 065
  2. USTEKINUMAB [Suspect]
     Active Substance: USTEKINUMAB
     Indication: PASH SYNDROME
     Dosage: UNK
     Route: 065
  3. RIFAMPICIN [Suspect]
     Active Substance: RIFAMPIN
     Indication: PASH SYNDROME
     Dosage: UNK
     Route: 065
  4. ADALIMUMAB [Suspect]
     Active Substance: ADALIMUMAB
     Indication: PASH SYNDROME
     Dosage: UNK
     Route: 065
  5. TALTZ [Concomitant]
     Active Substance: IXEKIZUMAB
     Indication: PASH SYNDROME
     Dosage: 160 MG LOADING DOSE
     Route: 065
  6. CLINDAMYCIN. [Suspect]
     Active Substance: CLINDAMYCIN
     Indication: PASH SYNDROME
     Dosage: UNK
     Route: 065
  7. DOXYCYCLINE. [Concomitant]
     Active Substance: DOXYCYCLINE
     Indication: PASH SYNDROME
     Dosage: 100 MILLIGRAM, BID
     Route: 065

REACTIONS (1)
  - Treatment failure [Unknown]
